FAERS Safety Report 16740580 (Version 6)
Quarter: 2020Q2

REPORT INFORMATION
  Report Type: Spontaneous
  Country: PT (occurrence: PT)
  Receive Date: 20190826
  Receipt Date: 20200619
  Transmission Date: 20200713
  Serious: Yes (Life-Threatening, Hospitalization, Other)
  Sender: FDA-Public Use
  Company Number: PT-MYLANLABS-2019M1079457

PATIENT
  Age: 38 Year
  Sex: Female

DRUGS (20)
  1. CODEINE PHOSPHATE HYDRATE [Suspect]
     Active Substance: CODEINE PHOSPHATE
     Dosage: UNK
  2. ALPRAZOLAM. [Suspect]
     Active Substance: ALPRAZOLAM
     Dosage: 40 MG, TOTAL
  3. NOREPINEPHRINE BITARTRATE. [Suspect]
     Active Substance: NOREPINEPHRINE BITARTRATE
     Indication: VASOPRESSIVE THERAPY
     Dosage: UNK, 5 DAYS
  4. PARACETAMOL [Suspect]
     Active Substance: ACETAMINOPHEN
     Dosage: 15 GRAM, OVERDOSE 15G
  5. VENLAFAXINE [Suspect]
     Active Substance: VENLAFAXINE HYDROCHLORIDE
     Indication: PRODUCT USED FOR UNKNOWN INDICATION
     Dosage: 3 GRAM, OVERDOSE 3GRAME
  6. PRACET [Suspect]
     Active Substance: VENLAFAXINE HYDROCHLORIDE
     Indication: PRODUCT USED FOR UNKNOWN INDICATION
     Dosage: 3 GRAM, QD
  7. ALPRAZOLAM. [Suspect]
     Active Substance: ALPRAZOLAM
     Indication: PRODUCT USED FOR UNKNOWN INDICATION
     Dosage: 16 MILLIGRAM, QD
  8. ALPRAZOLAM. [Suspect]
     Active Substance: ALPRAZOLAM
     Dosage: 20 MILLIGRAM DAILY
  9. AMOXICILLIN/CLAVULANIC ACID [Suspect]
     Active Substance: AMOXICILLIN\CLAVULANIC ACID
     Indication: PNEUMONIA
     Dosage: UNKNOWN DOSE,2 WEEK
  10. CODEINE PHOSPHATE HYDRATE [Suspect]
     Active Substance: CODEINE PHOSPHATE
     Dosage: 300 MILLIGRAM DAILY
  11. ALPRAZOLAM. [Suspect]
     Active Substance: ALPRAZOLAM
     Dosage: 40 MILLIGRAM, OVERDOSE 40MG
  12. PARACETAMOL [Suspect]
     Active Substance: ACETAMINOPHEN
     Indication: PRODUCT USED FOR UNKNOWN INDICATION
     Dosage: 15 GRAM, TOTAL
  13. PARACETAMOL [Suspect]
     Active Substance: ACETAMINOPHEN
     Dosage: 5 MILLIGRAM DAILY
  14. QUETIAPINE. [Suspect]
     Active Substance: QUETIAPINE
     Dosage: 800 MILLIGRAM, QD
  15. PRACET [Suspect]
     Active Substance: VENLAFAXINE HYDROCHLORIDE
     Dosage: 3 GRAM
  16. CODEINE PHOSPHATE HYDRATE [Suspect]
     Active Substance: CODEINE PHOSPHATE
     Indication: PRODUCT USED FOR UNKNOWN INDICATION
     Dosage: 900 MILLIGRAM, QD
     Route: 048
  17. AMOXICILLIN/CLAVULANIC ACID [Suspect]
     Active Substance: AMOXICILLIN\CLAVULANIC ACID
     Indication: STAPHYLOCOCCAL INFECTION
  18. CODEINE PHOSPHATE HYDRATE [Suspect]
     Active Substance: CODEINE PHOSPHATE
     Dosage: 900 MILLIGRAM, OVERDOSE 900MG
     Route: 048
  19. QUETIAPINE. [Suspect]
     Active Substance: QUETIAPINE
     Indication: PRODUCT USED FOR UNKNOWN INDICATION
     Dosage: 9 GRAM, OVERDOSE 9 GRAME
  20. ALPRAZOLAM. [Suspect]
     Active Substance: ALPRAZOLAM
     Dosage: 9 GRAM

REACTIONS (25)
  - Hydronephrosis [Unknown]
  - Normochromic normocytic anaemia [Unknown]
  - Cardiac dysfunction [Unknown]
  - Respiratory disorder [Unknown]
  - Dependence [Unknown]
  - Respiratory failure [Unknown]
  - Distributive shock [Unknown]
  - Liver injury [Unknown]
  - Hepatic function abnormal [Unknown]
  - Depressed mood [Unknown]
  - Cholestasis [Recovering/Resolving]
  - Multiple organ dysfunction syndrome [Unknown]
  - Staphylococcal infection [Unknown]
  - Anuria [Recovering/Resolving]
  - Agitation [Unknown]
  - Renal papillary necrosis [Unknown]
  - Cholestatic liver injury [Recovering/Resolving]
  - Acute kidney injury [Recovered/Resolved]
  - Neurological symptom [Unknown]
  - Coma [Unknown]
  - Delirium [Unknown]
  - Drug abuse [Unknown]
  - Intentional overdose [Unknown]
  - Pneumonia [Unknown]
  - Vocal cord paralysis [Unknown]
